FAERS Safety Report 11157653 (Version 1)
Quarter: 2015Q2

REPORT INFORMATION
  Report Type: Spontaneous
  Country: US (occurrence: None)
  Receive Date: 20150601
  Receipt Date: 20150601
  Transmission Date: 20150821
  Serious: No
  Sender: FDA-Public Use
  Company Number: None

PATIENT
  Age: 66 Year
  Sex: Male
  Weight: 84.7 kg

DRUGS (2)
  1. SEVOFLURANE. [Suspect]
     Active Substance: SEVOFLURANE
     Dates: start: 20130514, end: 20130514
  2. METOCLOPRAMIDE. [Suspect]
     Active Substance: METOCLOPRAMIDE
     Route: 042
     Dates: start: 20130514, end: 20130514

REACTIONS (4)
  - Agitation [None]
  - Muscle spasms [None]
  - Aggression [None]
  - Movement disorder [None]

NARRATIVE: CASE EVENT DATE: 20130515
